FAERS Safety Report 9475487 (Version 1)
Quarter: 2013Q3

REPORT INFORMATION
  Report Type: Spontaneous
  Country: US (occurrence: None)
  Receive Date: 20130822
  Receipt Date: 20130822
  Transmission Date: 20140515
  Serious: Yes (Hospitalization)
  Sender: FDA-Public Use
  Company Number: None

PATIENT
  Age: 79 Year
  Sex: Male
  Weight: 88.5 kg

DRUGS (2)
  1. METOPROLOL [Suspect]
     Indication: CORONARY ARTERY DISEASE
     Route: 048
     Dates: start: 20121220, end: 20130717
  2. TAMSULOSIN [Suspect]
     Indication: BENIGN PROSTATIC HYPERPLASIA
     Dosage: AT BEDTIME
     Route: 048
     Dates: start: 20090130, end: 20130717

REACTIONS (5)
  - Syncope [None]
  - Syncope [None]
  - Loss of consciousness [None]
  - Dizziness [None]
  - Orthostatic hypotension [None]
